FAERS Safety Report 12956607 (Version 1)
Quarter: 2016Q4

REPORT INFORMATION
  Report Type: Report from Study
  Country: CA (occurrence: CA)
  Receive Date: 20161118
  Receipt Date: 20161118
  Transmission Date: 20170207
  Serious: Yes (Hospitalization)
  Sender: FDA-Public Use
  Company Number: CA-HLSUS-2016-CA-000610

PATIENT
  Age: 27 Year
  Sex: Female

DRUGS (9)
  1. CLOZARIL [Suspect]
     Active Substance: CLOZAPINE
     Route: 048
     Dates: start: 2012
  2. FUCIDIN H [Concomitant]
  3. CARVEDILOL. [Concomitant]
     Active Substance: CARVEDILOL
  4. TECTA [Concomitant]
     Active Substance: PANTOPRAZOLE MAGNESIUM
  5. VITAMIN B12 [Concomitant]
     Active Substance: CYANOCOBALAMIN
  6. ELTROXIN [Concomitant]
     Active Substance: LEVOTHYROXINE
  7. PROVERA [Concomitant]
     Active Substance: MEDROXYPROGESTERONE ACETATE
  8. ERBUMINE [Concomitant]
  9. BISOPROLOL FUMARATE. [Concomitant]
     Active Substance: BISOPROLOL FUMARATE

REACTIONS (11)
  - Chronic kidney disease [Unknown]
  - Psychotic disorder [Recovered/Resolved]
  - Tachycardia [Unknown]
  - Cardiac failure acute [Unknown]
  - Weight decreased [Unknown]
  - Tubulointerstitial nephritis [Unknown]
  - Left ventricular dysfunction [Unknown]
  - Pulmonary oedema [Unknown]
  - Pleural effusion [Unknown]
  - Hypersomnia [Unknown]
  - Dizziness [Unknown]

NARRATIVE: CASE EVENT DATE: 2013
